FAERS Safety Report 4704900-4 (Version None)
Quarter: 2005Q3

REPORT INFORMATION
  Report Type: 
  Country: None (occurrence: None)
  Receive Date: 20050701
  Receipt Date: 20050629
  Transmission Date: 20060218
  Serious: Yes (Other)
  Sender: FDA-Public Use
  Company Number: PHBS2005BR09371

PATIENT
  Age: 43 Year
  Sex: Male
  Weight: 102 kg

DRUGS (1)
  1. DIOVAN [Suspect]
     Indication: HYPERTENSION
     Dosage: 160 MG, QD
     Route: 048
     Dates: start: 20000830, end: 20050624

REACTIONS (2)
  - VISUAL ACUITY REDUCED [None]
  - VISUAL DISTURBANCE [None]
